FAERS Safety Report 8024169-5 (Version None)
Quarter: 2012Q1

REPORT INFORMATION
  Report Type: 
  Country: None (occurrence: None)
  Receive Date: 20120103
  Receipt Date: 20111223
  Transmission Date: 20120608
  Serious: Yes (Death)
  Sender: FDA-Public Use
  Company Number: ADR-2011-11649

PATIENT
  Age: 53 Year
  Sex: Female

DRUGS (4)
  1. DILAUDID 7 MG/ML [Concomitant]
  2. BUPIVACAINE 30 MG/ML [Concomitant]
  3. CLONIDINE 500 MCG/ML [Concomitant]
  4. BACLOFEN [Suspect]
     Dosage: 385.15 MCG/DAY
     Route: 037

REACTIONS (2)
  - NEOPLASM PROGRESSION [None]
  - RECTAL CANCER METASTATIC [None]
